FAERS Safety Report 15592795 (Version 1)
Quarter: 2018Q4

REPORT INFORMATION
  Report Type: Spontaneous
  Country: US (occurrence: US)
  Receive Date: 20181107
  Receipt Date: 20181107
  Transmission Date: 20190205
  Serious: Yes (Death)
  Sender: FDA-Public Use
  Company Number: None

PATIENT
  Age: 69 Year
  Sex: Male

DRUGS (2)
  1. ASPIRIN. [Suspect]
     Active Substance: ASPIRIN
     Indication: AORTIC ANEURYSM REPAIR
  2. CLOPIDOGREL [Suspect]
     Active Substance: CLOPIDOGREL BISULFATE

REACTIONS (7)
  - Transfusion [None]
  - Duodenal ulcer [None]
  - Condition aggravated [None]
  - Cardiac arrest [None]
  - Abdominal pain [None]
  - Gastrointestinal necrosis [None]
  - Haemorrhagic anaemia [None]

NARRATIVE: CASE EVENT DATE: 20180220
